FAERS Safety Report 12359570 (Version 1)
Quarter: 2016Q2

REPORT INFORMATION
  Report Type: Spontaneous
  Country: FR (occurrence: FR)
  Receive Date: 20160512
  Receipt Date: 20160512
  Transmission Date: 20160815
  Serious: Yes (Life-Threatening, Hospitalization)
  Sender: FDA-Public Use
  Company Number: FR-JNJFOC-20160501839

PATIENT
  Age: 27 Year
  Sex: Male

DRUGS (4)
  1. EPITOMAX [Suspect]
     Active Substance: TOPIRAMATE
     Indication: POISONING DELIBERATE
     Route: 048
     Dates: start: 20160319, end: 20160319
  2. AVLOCARDYL [Suspect]
     Active Substance: PROPRANOLOL HYDROCHLORIDE
     Indication: POISONING DELIBERATE
     Route: 048
     Dates: start: 20160319, end: 20160319
  3. LEXOMIL [Suspect]
     Active Substance: BROMAZEPAM
     Indication: POISONING DELIBERATE
     Route: 048
     Dates: start: 20160319, end: 20160319
  4. ATARAX [Suspect]
     Active Substance: HYDROXYZINE\HYDROXYZINE HYDROCHLORIDE
     Indication: POISONING DELIBERATE
     Route: 048
     Dates: start: 20160319, end: 20160319

REACTIONS (3)
  - Overdose [Unknown]
  - Coma [Recovered/Resolved]
  - Cardiogenic shock [Recovered/Resolved]

NARRATIVE: CASE EVENT DATE: 20160319
